FAERS Safety Report 12216181 (Version 1)
Quarter: 2016Q1

REPORT INFORMATION
  Report Type: Spontaneous
  Country: GR (occurrence: GR)
  Receive Date: 20160329
  Receipt Date: 20160329
  Transmission Date: 20160526
  Serious: Yes (Death, Other)
  Sender: FDA-Public Use
  Company Number: GR-ALEMBIC PHARMACUETICALS LIMITED-2016SCAL000221

PATIENT
  Age: 19 Year

DRUGS (1)
  1. LAMOTRIGINE. [Suspect]
     Active Substance: LAMOTRIGINE
     Indication: PRODUCT USED FOR UNKNOWN INDICATION
     Dosage: 4 G, UNK

REACTIONS (5)
  - Death [Fatal]
  - Seizure [Unknown]
  - Respiratory arrest [Unknown]
  - Overdose [Unknown]
  - Atrioventricular block complete [Unknown]
